FAERS Safety Report 14346820 (Version 1)
Quarter: 2018Q1

REPORT INFORMATION
  Report Type: Spontaneous
  Country: NL (occurrence: NL)
  Receive Date: 20180103
  Receipt Date: 20180103
  Transmission Date: 20180509
  Serious: Yes (Death)
  Sender: FDA-Public Use
  Company Number: NL-ELI_LILLY_AND_COMPANY-NL201712013133

PATIENT
  Age: 44 Year
  Sex: Male

DRUGS (1)
  1. ADCIRCA [Suspect]
     Active Substance: TADALAFIL
     Indication: PULMONARY HYPERTENSION
     Dosage: 1 DF, DAILY
     Route: 048
     Dates: start: 20141015

REACTIONS (1)
  - Death [Fatal]

NARRATIVE: CASE EVENT DATE: 20171208
